FAERS Safety Report 9354518 (Version 2)
Quarter: 2013Q3

REPORT INFORMATION
  Report Type: Spontaneous
  Country: PR (occurrence: PR)
  Receive Date: 20130618
  Receipt Date: 20130715
  Transmission Date: 20140515
  Serious: Yes (Other)
  Sender: FDA-Public Use
  Company Number: US-009507513-1306USA005937

PATIENT
  Age: 52 Year
  Sex: Female

DRUGS (2)
  1. PEGINTRON [Suspect]
     Indication: HEPATITIS C
     Dosage: REDIPEN
     Dates: start: 20130423, end: 20130614
  2. REBETOL [Suspect]
     Indication: HEPATITIS C
     Dosage: UNK
     Route: 048
     Dates: start: 20130423, end: 20130614

REACTIONS (6)
  - Depression [Unknown]
  - Depression [Unknown]
  - Suicidal ideation [Unknown]
  - Aggression [Unknown]
  - Skin hypopigmentation [Unknown]
  - Decreased appetite [Unknown]
